FAERS Safety Report 9142696 (Version 1)
Quarter: 2013Q1

REPORT INFORMATION
  Report Type: Spontaneous
  Country: IT (occurrence: IT)
  Receive Date: 20130306
  Receipt Date: 20130306
  Transmission Date: 20140127
  Serious: Yes (Other)
  Sender: FDA-Public Use
  Company Number: IT-JNJFOC-20130215441

PATIENT
  Age: 39 Year
  Sex: Female
  Weight: 55 kg

DRUGS (2)
  1. HALDOL [Suspect]
     Indication: SELF INJURIOUS BEHAVIOUR
     Dosage: 0.2%
     Route: 048
     Dates: start: 20130225, end: 20130225
  2. RIVOTRIL [Suspect]
     Indication: SELF INJURIOUS BEHAVIOUR
     Route: 048
     Dates: start: 20130225, end: 20130225

REACTIONS (1)
  - Sluggishness [Unknown]
